FAERS Safety Report 8361486-3 (Version None)
Quarter: 2012Q2

REPORT INFORMATION
  Report Type: 
  Country: None (occurrence: None)
  Receive Date: 20120514
  Receipt Date: 20120427
  Transmission Date: 20120825
  Serious: Yes (Hospitalization, Other)
  Sender: FDA-Public Use
  Company Number: 2012US-56236

PATIENT
  Age: 10 Year
  Sex: Male

DRUGS (4)
  1. FENTANYL [Suspect]
     Indication: PRODUCT USED FOR UNKNOWN INDICATION
  2. ZIPRASIDONE HCL [Suspect]
     Indication: PRODUCT USED FOR UNKNOWN INDICATION
  3. MORPHINE [Suspect]
     Indication: PRODUCT USED FOR UNKNOWN INDICATION
  4. CODEINE SUL TAB [Suspect]
     Indication: PRODUCT USED FOR UNKNOWN INDICATION

REACTIONS (9)
  - SYNCOPE [None]
  - AMNESIA [None]
  - TREMOR [None]
  - FLUSHING [None]
  - CONFUSIONAL STATE [None]
  - HYPERHIDROSIS [None]
  - AGITATION [None]
  - SEROTONIN SYNDROME [None]
  - BLEPHAROSPASM [None]
